FAERS Safety Report 7110507-4 (Version None)
Quarter: 2010Q4

REPORT INFORMATION
  Report Type: 
  Country: None (occurrence: None)
  Receive Date: 20101118
  Receipt Date: 20101114
  Transmission Date: 20110411
  Serious: Yes (Death)
  Sender: FDA-Public Use
  Company Number: IT-CELGENEUS-083-21880-10090930

PATIENT
  Sex: Male

DRUGS (6)
  1. REVLIMID [Suspect]
     Indication: MULTIPLE MYELOMA
     Route: 048
     Dates: start: 20081109, end: 20090203
  2. BORTEZOMIB [Concomitant]
     Indication: MULTIPLE MYELOMA
     Route: 065
  3. ADRIAMYCIN PFS [Concomitant]
     Indication: MULTIPLE MYELOMA
     Route: 065
  4. DEXAMETHASONE [Concomitant]
     Indication: MULTIPLE MYELOMA
     Route: 065
  5. TOBRAMYCIN [Concomitant]
     Route: 051
     Dates: start: 20090422, end: 20090427
  6. CUBICIN [Concomitant]
     Route: 051
     Dates: start: 20090422, end: 20090503

REACTIONS (1)
  - ACUTE GRAFT VERSUS HOST DISEASE IN LIVER [None]
